FAERS Safety Report 11831897 (Version 1)
Quarter: 2015Q4

REPORT INFORMATION
  Report Type: Spontaneous
  Country: US (occurrence: US)
  Receive Date: 20151214
  Receipt Date: 20151214
  Transmission Date: 20160305
  Serious: No
  Sender: FDA-Public Use
  Company Number: US-UPSHER-SMITH LABORATORIES, INC.-15002742

PATIENT
  Age: 26 Year
  Sex: Male

DRUGS (1)
  1. QUDEXY XR [Suspect]
     Active Substance: TOPIRAMATE
     Indication: HEADACHE
     Dosage: UNK, UNK
     Route: 048

REACTIONS (1)
  - Headache [Recovered/Resolved]
